FAERS Safety Report 9382996 (Version 1)
Quarter: 2013Q3

REPORT INFORMATION
  Report Type: Spontaneous
  Country: NL (occurrence: NL)
  Receive Date: 20130703
  Receipt Date: 20130703
  Transmission Date: 20140515
  Serious: Yes (Hospitalization)
  Sender: FDA-Public Use
  Company Number: NL-B.I. PHARMACEUTICALS,INC./RIDGEFIELD-2013-NL-00466NL

PATIENT
  Age: 75 Year
  Sex: Male

DRUGS (2)
  1. PRADAXA [Suspect]
     Indication: ATRIAL FIBRILLATION
     Dates: start: 2012
  2. PRADAXA [Suspect]

REACTIONS (4)
  - Respiratory tract infection [Recovered/Resolved]
  - Local swelling [Unknown]
  - Fatigue [Unknown]
  - Dysphagia [Unknown]
